FAERS Safety Report 8229655-0 (Version None)
Quarter: 2012Q1

REPORT INFORMATION
  Report Type: 
  Country: None (occurrence: None)
  Receive Date: 20120322
  Receipt Date: 20120315
  Transmission Date: 20120608
  Serious: Yes (Other)
  Sender: FDA-Public Use
  Company Number: PHHY2012JP023863

PATIENT
  Age: 7 Year
  Sex: Male

DRUGS (3)
  1. FLUCORT [Concomitant]
     Dosage: UNK
     Dates: end: 20120310
  2. ZADITEN [Suspect]
     Indication: ECZEMA
     Dosage: SINGLE DOSE
     Route: 048
     Dates: start: 20120310, end: 20120310
  3. MYSER [Concomitant]
     Dosage: UNK
     Dates: start: 20120308, end: 20120310

REACTIONS (6)
  - RASH GENERALISED [None]
  - ERYTHEMA [None]
  - PRURITUS [None]
  - BLOOD CREATINE PHOSPHOKINASE INCREASED [None]
  - HYPERSENSITIVITY [None]
  - SWELLING [None]
